FAERS Safety Report 8108919-5 (Version None)
Quarter: 2012Q1

REPORT INFORMATION
  Report Type: 
  Country: None (occurrence: None)
  Receive Date: 20120202
  Receipt Date: 20120123
  Transmission Date: 20120608
  Serious: Yes (Hospitalization)
  Sender: FDA-Public Use
  Company Number: US-VIIV HEALTHCARE LIMITED-B0745142A

PATIENT
  Age: 44 Year
  Sex: Male
  Weight: 74.1 kg

DRUGS (4)
  1. SELZENTRY [Suspect]
     Indication: HIV INFECTION
     Dosage: 300MG TWICE PER DAY
     Dates: start: 20110210
  2. ATORVASTATIN [Concomitant]
     Indication: HYPERLIPIDAEMIA
     Dosage: 40MG AT NIGHT
     Route: 048
  3. EPZICOM [Concomitant]
     Indication: HIV INFECTION
     Dosage: 1TAB PER DAY
     Dates: start: 20110210
  4. ASPIRIN [Concomitant]
     Indication: CORONARY ARTERY DISEASE
     Dosage: 81MG PER DAY
     Route: 048

REACTIONS (1)
  - ACUTE MYOCARDIAL INFARCTION [None]
